FAERS Safety Report 23340464 (Version 2)
Quarter: 2024Q1

REPORT INFORMATION
  Report Type: Report from Study
  Country: US (occurrence: US)
  Receive Date: 20231227
  Receipt Date: 20240206
  Transmission Date: 20240410
  Serious: Yes (Other)
  Sender: FDA-Public Use
  Company Number: US-Accord-392657

PATIENT
  Age: 59 Year
  Sex: Male

DRUGS (4)
  1. TRAZODONE HYDROCHLORIDE [Suspect]
     Active Substance: TRAZODONE HYDROCHLORIDE
     Indication: Sleep disorder
     Dosage: QD
  2. RELUGOLIX [Suspect]
     Active Substance: RELUGOLIX
     Indication: Prostate cancer
     Dosage: STRENGTH:120 MILLIGRAM, QD
     Route: 048
  3. RELUGOLIX [Suspect]
     Active Substance: RELUGOLIX
     Indication: Prostate cancer
     Dosage: STRENGTH:120 MILLIGRAM
     Route: 048
  4. RELUGOLIX [Suspect]
     Active Substance: RELUGOLIX
     Indication: Prostate cancer
     Dosage: STRENGTH: 120 MILLIGRAM
     Route: 065

REACTIONS (9)
  - Musculoskeletal discomfort [Unknown]
  - Arrhythmia [Unknown]
  - Back pain [Unknown]
  - Hot flush [Unknown]
  - Night sweats [Unknown]
  - Memory impairment [Unknown]
  - Product dose omission in error [Recovered/Resolved]
  - Stent placement [Unknown]
  - Stent removal [Recovered/Resolved]

NARRATIVE: CASE EVENT DATE: 20230808
